FAERS Safety Report 17277066 (Version 1)
Quarter: 2020Q1

REPORT INFORMATION
  Report Type: Spontaneous
  Country: US (occurrence: US)
  Receive Date: 20200116
  Receipt Date: 20200116
  Transmission Date: 20200409
  Serious: Yes (Other)
  Sender: FDA-Public Use
  Company Number: None

PATIENT
  Age: 30 Year
  Sex: Female
  Weight: 58.5 kg

DRUGS (2)
  1. ZOLPIDEM [Suspect]
     Active Substance: ZOLPIDEM TARTRATE
     Indication: INSOMNIA
     Route: 048
     Dates: start: 20191227, end: 20191227
  2. ZOLPIDEM [Suspect]
     Active Substance: ZOLPIDEM TARTRATE
     Indication: CIRCADIAN RHYTHM SLEEP DISORDER
     Route: 048
     Dates: start: 20191227, end: 20191227

REACTIONS (2)
  - VIth nerve paralysis [None]
  - Diplopia [None]

NARRATIVE: CASE EVENT DATE: 20191227
